FAERS Safety Report 21489153 (Version 1)
Quarter: 2022Q4

REPORT INFORMATION
  Report Type: Spontaneous
  Country: DE (occurrence: DE)
  Receive Date: 20221021
  Receipt Date: 20221021
  Transmission Date: 20230113
  Serious: Yes (Other)
  Sender: FDA-Public Use
  Company Number: DE-ALKEM LABORATORIES LIMITED-DE-ALKEM-2022-10910

PATIENT
  Sex: Male

DRUGS (1)
  1. CEFUROXIME AXETIL [Suspect]
     Active Substance: CEFUROXIME AXETIL
     Indication: Localised infection
     Dosage: 500 MILLIGRAM, EVERY 2 DAY (CEFURAX FILMTABLETTEN)
     Route: 048
     Dates: start: 20220923

REACTIONS (3)
  - Foreign body in throat [Recovering/Resolving]
  - Off label use [Unknown]
  - Product solubility abnormal [Unknown]

NARRATIVE: CASE EVENT DATE: 20220901
